FAERS Safety Report 5218645-8 (Version None)
Quarter: 2007Q1

REPORT INFORMATION
  Report Type: 
  Country: None (occurrence: None)
  Receive Date: 20070122
  Receipt Date: 20070109
  Transmission Date: 20070707
  Serious: Yes (Death, Hospitalization)
  Sender: FDA-Public Use
  Company Number: 2006EU000117

PATIENT
  Age: 60 Year
  Sex: Female

DRUGS (5)
  1. PROGRAF [Suspect]
     Indication: RENAL TRANSPLANT
     Dates: start: 20020801
  2. STEROID ANTIBACTERIALS [Concomitant]
  3. MYCOPHENOLATE MOFETIL [Concomitant]
  4. ANTITHYMOCYTE IMMUNOGLOBULIN (ANTITHYMOCYTE IMMUNOGLOBULIN) [Concomitant]
  5. RITUXIMAB (RITUXIMAB) [Concomitant]

REACTIONS (5)
  - CYTOMEGALOVIRUS INFECTION [None]
  - ENCEPHALITIC INFECTION [None]
  - FASCIAL INFECTION [None]
  - GLOMERULONEPHRITIS [None]
  - MENINGITIS CRYPTOCOCCAL [None]
